FAERS Safety Report 7038691-1 (Version None)
Quarter: 2010Q4

REPORT INFORMATION
  Report Type: 
  Country: None (occurrence: None)
  Receive Date: 20101012
  Receipt Date: 20100730
  Transmission Date: 20110411
  Serious: No
  Sender: FDA-Public Use
  Company Number: US-ALLERGAN-1009928US

PATIENT
  Age: 65 Year
  Sex: Female

DRUGS (2)
  1. OZURDEX [Suspect]
     Indication: MACULAR OEDEMA
     Dosage: 0.7 MG, SINGLE
     Route: 031
     Dates: start: 20100728, end: 20100728
  2. AZACID [Concomitant]
     Dosage: 1 GTT, QD
     Route: 047

REACTIONS (2)
  - EYE DISORDER [None]
  - INSTILLATION SITE ERYTHEMA [None]
